FAERS Safety Report 6467358-3 (Version None)
Quarter: 2009Q4

REPORT INFORMATION
  Report Type: 
  Country: None (occurrence: None)
  Receive Date: 20091202
  Receipt Date: 20091124
  Transmission Date: 20100525
  Serious: Yes (Disabling)
  Sender: FDA-Public Use
  Company Number: PT-PFIZER INC-2009301871

PATIENT
  Age: 48 Year
  Sex: Female
  Weight: 70 kg

DRUGS (5)
  1. CHAMPIX [Suspect]
     Indication: SMOKING CESSATION THERAPY
     Dosage: 1 MG, 2X/DAY
     Route: 048
     Dates: start: 20081228, end: 20090101
  2. NORTRIPTYLINE HYDROCHLORIDE [Concomitant]
     Indication: SMOKING CESSATION THERAPY
     Dosage: 50 MG, UNK
     Route: 048
     Dates: start: 20041029
  3. LOPRAZOLAM [Concomitant]
     Indication: INSOMNIA
     Dosage: 1 MG, UNK
     Route: 048
  4. BUDESONIDE [Concomitant]
     Indication: ASTHMA
     Dosage: 329 UG, UNK
  5. FORMOTEROL FUMARATE [Concomitant]
     Indication: ASTHMA
     Dosage: 329 UG, UNK

REACTIONS (1)
  - DEPRESSION [None]
